FAERS Safety Report 6035951-8 (Version None)
Quarter: 2009Q1

REPORT INFORMATION
  Report Type: 
  Country: None (occurrence: None)
  Receive Date: 20090113
  Receipt Date: 20090105
  Transmission Date: 20090719
  Serious: Yes (Life-Threatening, Disabling, Other)
  Sender: FDA-Public Use
  Company Number: JP-ROCHE-604545

PATIENT
  Sex: Male

DRUGS (15)
  1. MIDAZOLAM HCL [Suspect]
     Route: 042
  2. MIDAZOLAM HCL [Suspect]
     Route: 042
     Dates: start: 20080312, end: 20080312
  3. VECURONIUM BROMIDE [Suspect]
     Route: 065
     Dates: start: 20080312, end: 20080312
  4. SEVOFLURANE [Suspect]
     Route: 055
     Dates: start: 20080312, end: 20080312
  5. ULTIVA [Suspect]
     Route: 065
     Dates: start: 20080312, end: 20080312
  6. DROLEPTAN [Suspect]
     Route: 065
     Dates: start: 20080312, end: 20080312
  7. METHOXAMINE HYDROCHLORIDE [Concomitant]
     Dosage: DRUG NAME REPORTED AS MEXAN
     Route: 065
     Dates: start: 20080312, end: 20080312
  8. FENTANYL CITRATE [Concomitant]
     Route: 065
     Dates: start: 20080312, end: 20080312
  9. EPOGIN [Concomitant]
     Dosage: 24000 U/DAY
     Route: 065
     Dates: start: 20080312, end: 20080312
  10. CARBOCAIN [Concomitant]
     Dates: start: 20080312, end: 20080312
  11. ATROPINE [Concomitant]
     Route: 065
     Dates: start: 20080312, end: 20080312
  12. FAMOTIDINE [Concomitant]
     Route: 065
     Dates: start: 20080312, end: 20080312
  13. ROPIVACAINE [Concomitant]
     Dosage: DRUG NAME REPORTED AS ANAPEINE
     Dates: start: 20080312, end: 20080312
  14. LAUGHING GAS [Concomitant]
     Route: 055
     Dates: start: 20080312, end: 20080312
  15. EPHEDRIN [Concomitant]
     Route: 065
     Dates: start: 20080312, end: 20080312

REACTIONS (4)
  - BLOOD CREATINE PHOSPHOKINASE INCREASED [None]
  - MYOGLOBINAEMIA [None]
  - POST PROCEDURAL COMPLICATION [None]
  - POSTOPERATIVE FEVER [None]
